FAERS Safety Report 5498809-9 (Version None)
Quarter: 2007Q4

REPORT INFORMATION
  Report Type: 
  Country: None (occurrence: None)
  Receive Date: 20071026
  Receipt Date: 20070720
  Transmission Date: 20080405
  Serious: No
  Sender: FDA-Public Use
  Company Number: A0665389A

PATIENT
  Age: 83 Year
  Sex: Female

DRUGS (5)
  1. ADVAIR DISKUS 100/50 [Suspect]
     Indication: CHRONIC OBSTRUCTIVE PULMONARY DISEASE
     Dosage: 1PUFF TWICE PER DAY
     Route: 055
     Dates: start: 20060101
  2. SPIRIVA [Concomitant]
  3. SOLETON [Concomitant]
  4. VICODIN [Concomitant]
  5. PLAVIX [Concomitant]

REACTIONS (4)
  - BONE PAIN [None]
  - DYSPNOEA [None]
  - INSOMNIA [None]
  - RESTLESSNESS [None]
